FAERS Safety Report 26071496 (Version 1)
Quarter: 2025Q4

REPORT INFORMATION
  Report Type: Spontaneous
  Country: US (occurrence: US)
  Receive Date: 20251120
  Receipt Date: 20251120
  Transmission Date: 20260117
  Serious: No
  Sender: GRIFOLS
  Company Number: US-IGSA-BIG0039609

PATIENT
  Age: 61 Year
  Sex: Male

DRUGS (1)
  1. GAMUNEX-C [Suspect]
     Active Substance: HUMAN IMMUNOGLOBULIN G
     Indication: Chronic inflammatory demyelinating polyradiculoneuropathy
     Dosage: UNK, Q.3WK.
     Route: 042
     Dates: start: 2019

REACTIONS (4)
  - Extravasation [Unknown]
  - Fatigue [Recovered/Resolved]
  - Hypersensitivity [Unknown]
  - Infusion site streaking [Recovered/Resolved]

NARRATIVE: CASE EVENT DATE: 20251101
